FAERS Safety Report 16960887 (Version 3)
Quarter: 2024Q2

REPORT INFORMATION
  Report Type: Spontaneous
  Country: FR (occurrence: FR)
  Receive Date: 20191025
  Receipt Date: 20240425
  Transmission Date: 20240715
  Serious: Yes (Other)
  Sender: FDA-Public Use
  Company Number: FR-SA-2019SA289893

PATIENT
  Age: 49 Year
  Sex: Female

DRUGS (8)
  1. METHYLPREDNISOLONE [Suspect]
     Active Substance: METHYLPREDNISOLONE
     Indication: Adenocarcinoma of colon
     Dosage: UNK
     Dates: start: 2010
  2. METHYLPREDNISOLONE [Suspect]
     Active Substance: METHYLPREDNISOLONE
     Indication: Premedication
  3. OXALIPLATIN [Suspect]
     Active Substance: OXALIPLATIN
     Indication: Adenocarcinoma of colon
     Dosage: UNK
     Dates: start: 2010
  4. LEUCOVORIN [Suspect]
     Active Substance: LEUCOVORIN\LEUCOVORIN CALCIUM
     Indication: Adenocarcinoma of colon
     Dosage: UNK
     Dates: start: 2010
  5. FLUOROURACIL [Concomitant]
     Active Substance: FLUOROURACIL
     Indication: Adenocarcinoma of colon
     Dosage: UNK
     Dates: start: 2010
  6. BEVACIZUMAB [Concomitant]
     Active Substance: BEVACIZUMAB
     Indication: Adenocarcinoma of colon
  7. IRINOTECAN [Concomitant]
     Active Substance: IRINOTECAN
     Indication: Colon cancer
     Dosage: UNK
     Dates: start: 2011
  8. ONDANSETRON [Concomitant]
     Active Substance: ONDANSETRON
     Indication: Premedication
     Dosage: UNK
     Dates: start: 201102

REACTIONS (5)
  - Immune thrombocytopenia [Recovered/Resolved]
  - Pyrexia [Recovered/Resolved]
  - Chills [Recovered/Resolved]
  - Back pain [Recovered/Resolved]
  - Purpura [Recovered/Resolved]

NARRATIVE: CASE EVENT DATE: 20110201
